FAERS Safety Report 7675932-1 (Version None)
Quarter: 2011Q3

REPORT INFORMATION
  Report Type: 
  Country: None (occurrence: None)
  Receive Date: 20110811
  Receipt Date: 20110804
  Transmission Date: 20111222
  Serious: No
  Sender: FDA-Public Use
  Company Number: US-BIOGENIDEC-2011BI029625

PATIENT
  Sex: Female

DRUGS (3)
  1. AVONEX [Suspect]
     Indication: MULTIPLE SCLEROSIS
     Route: 030
     Dates: start: 20001120, end: 20050101
  2. AVONEX [Suspect]
     Route: 030
     Dates: start: 20061221, end: 20110701
  3. AVONEX [Suspect]
     Route: 030
     Dates: start: 20050101, end: 20061221

REACTIONS (4)
  - MEMORY IMPAIRMENT [None]
  - HYPOAESTHESIA [None]
  - LOSS OF CONTROL OF LEGS [None]
  - MULTIPLE SCLEROSIS [None]
